FAERS Safety Report 10442652 (Version 1)
Quarter: 2014Q3

REPORT INFORMATION
  Report Type: Spontaneous
  Country: US (occurrence: US)
  Receive Date: 20140909
  Receipt Date: 20140909
  Transmission Date: 20150326
  Serious: No
  Sender: FDA-Public Use
  Company Number: US-BAYER-2014-133687

PATIENT
  Age: 72 Year
  Sex: Male
  Weight: 123 kg

DRUGS (8)
  1. ALEVE [Suspect]
     Active Substance: NAPROXEN SODIUM
     Indication: ARTHRITIS
     Dosage: 1 DF, BID
     Route: 048
     Dates: end: 20140902
  2. BENAZEPRIL [Concomitant]
     Active Substance: BENAZEPRIL\BENAZEPRIL HYDROCHLORIDE
     Dosage: UNK
     Dates: end: 201403
  3. BAYER LOW DOSE [Concomitant]
     Active Substance: ASPIRIN
     Indication: ISCHAEMIC HEART DISEASE PROPHYLAXIS
     Dosage: UNK
     Dates: end: 2013
  4. METFORMINE [Concomitant]
     Active Substance: METFORMIN HYDROCHLORIDE
  5. CORTIZONE 10 [Concomitant]
     Active Substance: HYDROCORTISONE
  6. ALEVE [Suspect]
     Active Substance: NAPROXEN SODIUM
     Indication: ARTHRITIS
     Dosage: 1 DF, BID
     Route: 048
     Dates: end: 20140902
  7. LISINOPRIL. [Concomitant]
     Active Substance: LISINOPRIL
  8. BAYER ASPIRIN REGIMEN REGULAR 325 MG STRENGTH [Suspect]
     Active Substance: ASPIRIN
     Indication: ARTHRITIS
     Dosage: 1-2 DF, OTHER FREQUENCY
     Route: 048
     Dates: end: 2013

REACTIONS (2)
  - Incorrect drug administration duration [None]
  - Incorrect drug administration duration [None]

NARRATIVE: CASE EVENT DATE: 2013
